FAERS Safety Report 20165816 (Version 1)
Quarter: 2021Q4

REPORT INFORMATION
  Report Type: Spontaneous
  Country: US (occurrence: US)
  Receive Date: 20211209
  Receipt Date: 20211209
  Transmission Date: 20220303
  Serious: Yes (Hospitalization)
  Sender: FDA-Public Use
  Company Number: US-ZO SKIN HEALTH-2021ZOS00027

PATIENT
  Sex: Female

DRUGS (7)
  1. ZO SKIN HEALTH PIGMENT CONTROL CREME HYDROQUINONE [Suspect]
     Active Substance: HYDROQUINONE
     Indication: Chloasma
     Dosage: 1X/DAY TO FACE
     Dates: start: 20210915, end: 20211001
  2. ZO SKIN HEALTH PIGMENT CONTROL PLUS BLENDING CREME HYDROQUINONE [Suspect]
     Active Substance: HYDROQUINONE
     Indication: Chloasma
     Dosage: EVERY OTHER DAY TO FACE
     Dates: start: 20210915, end: 20211001
  3. RETINOL [Suspect]
     Active Substance: RETINOL
     Indication: Chloasma
     Dosage: EVERY OTHER DAY TO FACE
     Dates: start: 20210915, end: 20211001
  4. ZO SKIN HEALTH DAILY POWER DEFENSE [Concomitant]
     Dosage: UNK, 2X/DAY
  5. ZO SKIN HEALTH BRIGHTALIVE [Concomitant]
     Dosage: IN THE MORNINGS
  6. DERMALOGICA SUPERFOLIANT [Concomitant]
     Dosage: UNK
  7. UNSPECIFIED HYDRATING CREME [Concomitant]

REACTIONS (11)
  - Transaminases increased [Recovering/Resolving]
  - Hyperbilirubinaemia [Unknown]
  - Blood pressure increased [Unknown]
  - Generalised anxiety disorder [Unknown]
  - Abdominal pain [Unknown]
  - Pain in extremity [Unknown]
  - Gastrooesophageal reflux disease [Unknown]
  - Nervousness [Unknown]
  - Application site pruritus [Recovering/Resolving]
  - Application site pain [Recovering/Resolving]
  - Hypersensitivity [Unknown]

NARRATIVE: CASE EVENT DATE: 20210101
